FAERS Safety Report 5077879-6 (Version None)
Quarter: 2006Q3

REPORT INFORMATION
  Report Type: 
  Country: None (occurrence: None)
  Receive Date: 20060720
  Receipt Date: 20051206
  Transmission Date: 20061208
  Serious: No
  Sender: FDA-Public Use
  Company Number: 2006MP000056

PATIENT
  Age: 60 Year
  Sex: Male

DRUGS (1)
  1. AGGRASTAT [Suspect]
     Dosage: IV
     Route: 042

REACTIONS (2)
  - BLOOD PRESSURE DECREASED [None]
  - HAEMORRHAGE [None]
